FAERS Safety Report 15288559 (Version 1)
Quarter: 2018Q3

REPORT INFORMATION
  Report Type: Spontaneous
  Country: FR (occurrence: FR)
  Receive Date: 20180817
  Receipt Date: 20180817
  Transmission Date: 20181010
  Serious: Yes (Congenital Anomaly)
  Sender: FDA-Public Use
  Company Number: FR-TEVA-2018-FR-942803

PATIENT
  Age: 0 Day
  Sex: Male

DRUGS (4)
  1. SERESTA 10 MG, COMPRIM? [Suspect]
     Active Substance: OXAZEPAM
     Indication: ANXIETY
     Dosage: 10 MILLIGRAM DAILY; COMPRESSED
     Route: 064
     Dates: start: 20180629, end: 20180706
  2. PAROXETINE. [Suspect]
     Active Substance: PAROXETINE
     Indication: ANXIETY
     Dosage: 20 MILLIGRAM DAILY;
     Route: 064
     Dates: start: 20180502, end: 20180706
  3. URBANYL [Suspect]
     Active Substance: CLOBAZAM
     Indication: ANXIETY
     Dosage: 1 DOSAGE FORMS DAILY; 10 TO 20 MG PER DAY
     Route: 064
     Dates: start: 20180502, end: 20180629
  4. LEVETIRACETAM. [Suspect]
     Active Substance: LEVETIRACETAM
     Indication: EPILEPSY
     Dosage: 3.5 GRAM DAILY;
     Route: 064
     Dates: start: 20171023, end: 20180706

REACTIONS (1)
  - Hamartoma [Recovered/Resolved]

NARRATIVE: CASE EVENT DATE: 20180706
